FAERS Safety Report 7367762-5 (Version None)
Quarter: 2011Q1

REPORT INFORMATION
  Report Type: 
  Country: None (occurrence: None)
  Receive Date: 20110304
  Receipt Date: 20110228
  Transmission Date: 20110831
  Serious: Yes (Disabling)
  Sender: FDA-Public Use
  Company Number: WAES 1012DEU00053

PATIENT
  Age: 79 Year
  Sex: Female
  Weight: 54.8852 kg

DRUGS (2)
  1. CALCIUM (UNSPECIFIED) (+) VITAMIN [Concomitant]
  2. ALENDRONATE SODIUM [Suspect]
     Indication: OSTEOPOROSIS
     Dosage: 70 MG, WKY, PO
     Route: 048
     Dates: start: 20100913, end: 20100913

REACTIONS (1)
  - NO ADVERSE EVENT [None]
